FAERS Safety Report 15257804 (Version 2)
Quarter: 2018Q3

REPORT INFORMATION
  Report Type: Spontaneous
  Country: US (occurrence: US)
  Receive Date: 20180808
  Receipt Date: 20180822
  Transmission Date: 20181010
  Serious: No
  Sender: FDA-Public Use
  Company Number: US-MITSUBISHI TANABE PHARMA CORPORATION-MPE2018-0018708

PATIENT
  Age: 67 Year
  Sex: Female

DRUGS (1)
  1. RADICAVA [Suspect]
     Active Substance: EDARAVONE
     Indication: AMYOTROPHIC LATERAL SCLEROSIS
     Route: 042
     Dates: start: 20180719

REACTIONS (2)
  - Product leakage [Unknown]
  - No adverse event [Unknown]

NARRATIVE: CASE EVENT DATE: 20180727
